FAERS Safety Report 13227199 (Version 1)
Quarter: 2017Q1

REPORT INFORMATION
  Report Type: Not Available
  Country: FR (occurrence: FR)
  Receive Date: 20170213
  Receipt Date: 20170213
  Transmission Date: 20170428
  Serious: Yes (Death, Hospitalization)
  Sender: FDA-Public Use
  Company Number: FR-PURDUE-GBR-2017-0043307

PATIENT
  Age: 69 Year
  Sex: Female

DRUGS (28)
  1. IMOVANE [Suspect]
     Active Substance: ZOPICLONE
     Dosage: 7.5 MG, DAILY
     Route: 048
     Dates: start: 201511, end: 20151209
  2. SEROPRAM [Suspect]
     Active Substance: CITALOPRAM HYDROBROMIDE
     Indication: INSOMNIA
     Dosage: UNK
     Route: 048
     Dates: start: 20151218
  3. ALPRAZOLAM. [Suspect]
     Active Substance: ALPRAZOLAM
     Indication: DEPRESSION
     Dosage: UNK
     Route: 048
     Dates: start: 20151213
  4. KALINOX [Concomitant]
     Active Substance: NITROUS OXIDE
     Dosage: DURING DRESSING CHANGES
  5. NEBIVOLOL. [Concomitant]
     Active Substance: NEBIVOLOL
     Dosage: 1/4 IN THE MORNING
  6. TAHOR [Concomitant]
     Active Substance: ATORVASTATIN CALCIUM
     Dosage: ONE IN THE EVENING
  7. ROCEPHINE [Concomitant]
     Active Substance: CEFTRIAXONE SODIUM
     Dosage: UNK
  8. GLUCOSE [Concomitant]
     Active Substance: DEXTROSE
  9. PANTOPRAZOLE [Concomitant]
     Active Substance: PANTOPRAZOLE SODIUM
     Dosage: 40 MG, DAILY
  10. SODIUM [Concomitant]
     Active Substance: SODIUM
     Dosage: MORNING AND EVENING
  11. HYDROCORTISONE. [Concomitant]
     Active Substance: HYDROCORTISONE
     Dosage: 20MG IN THE MORNING AND 10MG AT NOON
  12. SEROPRAM [Suspect]
     Active Substance: CITALOPRAM HYDROBROMIDE
     Dosage: 30 MG, PM
     Route: 048
     Dates: start: 201511, end: 20151209
  13. B6 [Concomitant]
     Active Substance: PYRIDOXINE HYDROCHLORIDE
     Dosage: MORNING AND EVENING
  14. DOLIPRANE [Concomitant]
     Active Substance: ACETAMINOPHEN
     Dosage: UNK, PRN
  15. B1 VITAMIN [Concomitant]
     Dosage: MORNING AND EVENING
  16. KARDEGIC [Concomitant]
     Active Substance: ASPIRIN LYSINE
  17. DELURSAN [Concomitant]
     Active Substance: URSODIOL
     Dosage: 1 TABLET, BID (ONE TABLET MORNING AND EVENING)
  18. BUDESONIDE. [Concomitant]
     Active Substance: BUDESONIDE
     Dosage: ONE MORNING AND EVENING
  19. CLINUTREN [Concomitant]
     Dosage: ONE PER DAY
  20. OXYNORM [Suspect]
     Active Substance: OXYCODONE HYDROCHLORIDE
     Indication: PAIN
     Dosage: UNK UNK, PRN
     Route: 048
     Dates: start: 201512, end: 20151209
  21. OXYCONTIN [Suspect]
     Active Substance: OXYCODONE HYDROCHLORIDE
     Indication: PAIN
     Dosage: 25MG IN THE MORNING AND 20MG IN THE EVENING
     Route: 048
     Dates: start: 201511, end: 20151209
  22. ALPRAZOLAM. [Suspect]
     Active Substance: ALPRAZOLAM
     Dosage: 0.25 IN THE MORNING AND 0.50 IN THE EVENING
     Route: 048
     Dates: start: 201511, end: 20151209
  23. MOVICOL [Concomitant]
     Active Substance: POLYETHYLENE GLYCOL 3350\POTASSIUM CHLORIDE\SODIUM BICARBONATE\SODIUM CHLORIDE
     Dosage: ONE IN THE MORNING
  24. TRINITRINE [Concomitant]
     Active Substance: NITROGLYCERIN
     Dosage: 10 MG, DAILY
  25. BRICANYL [Concomitant]
     Active Substance: TERBUTALINE SULFATE
     Dosage: UNK, TID
  26. IMOVANE [Suspect]
     Active Substance: ZOPICLONE
     Indication: INSOMNIA
     Dosage: UNK
     Route: 048
     Dates: start: 20151211
  27. CALCIPARINE [Concomitant]
     Active Substance: HEPARIN CALCIUM
     Dosage: 0.2 ML, BID
  28. LYRICA [Concomitant]
     Active Substance: PREGABALIN
     Dosage: MORNING AND EVENING

REACTIONS (4)
  - Staphylococcal sepsis [Unknown]
  - Depressed level of consciousness [Recovered/Resolved]
  - Skin ulcer [Unknown]
  - Disease progression [Fatal]

NARRATIVE: CASE EVENT DATE: 20151209
